FAERS Safety Report 8380732-3 (Version None)
Quarter: 2012Q2

REPORT INFORMATION
  Report Type: 
  Country: None (occurrence: None)
  Receive Date: 20120523
  Receipt Date: 20120516
  Transmission Date: 20120825
  Serious: Yes (Death, Congenital Anomaly)
  Sender: FDA-Public Use
  Company Number: FR-BRISTOL-MYERS SQUIBB COMPANY-16330961

PATIENT
  Sex: Female

DRUGS (3)
  1. REYATAZ [Suspect]
     Route: 064
     Dates: start: 20050101
  2. TRUVADA [Suspect]
     Route: 064
     Dates: start: 20051001
  3. NORVIR [Suspect]
     Route: 064
     Dates: start: 20051001

REACTIONS (1)
  - CONGENITAL CENTRAL NERVOUS SYSTEM ANOMALY [None]
